FAERS Safety Report 20103656 (Version 1)
Quarter: 2021Q4

REPORT INFORMATION
  Report Type: Spontaneous
  Country: None (occurrence: GB)
  Receive Date: 20211123
  Receipt Date: 20211123
  Transmission Date: 20220303
  Serious: Yes (Hospitalization)
  Sender: FDA-Public Use
  Company Number: GB-B.Braun Medical Inc.-2122236

PATIENT
  Sex: Female

DRUGS (5)
  1. ACETAMINOPHEN [Suspect]
     Active Substance: ACETAMINOPHEN
  2. CLOZARIL [Suspect]
     Active Substance: CLOZAPINE
  3. LORAZEPAM [Suspect]
     Active Substance: LORAZEPAM
  4. TRAMADOL [Suspect]
     Active Substance: TRAMADOL
  5. ZOPICLONE [Suspect]
     Active Substance: ZOPICLONE

REACTIONS (2)
  - Toothache [Unknown]
  - Overdose [Unknown]
